FAERS Safety Report 10099995 (Version 2)
Quarter: 2014Q2

REPORT INFORMATION
  Report Type: Spontaneous
  Country: US (occurrence: US)
  Receive Date: 20140423
  Receipt Date: 20140423
  Transmission Date: 20141212
  Serious: Yes (Disabling)
  Sender: FDA-Public Use
  Company Number: US-PERRIGO-13US010455

PATIENT
  Age: 22 Year
  Sex: Female
  Weight: 129.25 kg

DRUGS (2)
  1. MICONAZOLE NITRATE COMBO PACK 214/070 4% 982 [Suspect]
     Indication: VULVOVAGINAL MYCOTIC INFECTION
     Dosage: 200 MG, SINGLE AT BEDTIME
     Route: 067
     Dates: start: 20131003, end: 20131003
  2. MICONAZOLE NITRATE COMBO PACK 214/070 2% 982 [Suspect]
     Indication: VULVOVAGINAL MYCOTIC INFECTION
     Dosage: ONE APPLICATION, SINGLE
     Route: 061
     Dates: start: 20131003, end: 20131003

REACTIONS (10)
  - Vulvovaginal pain [Unknown]
  - Hypersensitivity [Unknown]
  - Vaginal discharge [Unknown]
  - Vulvovaginal dryness [Not Recovered/Not Resolved]
  - Pelvic pain [Unknown]
  - Vaginal inflammation [Unknown]
  - Abdominal pain [Unknown]
  - Vulvovaginal swelling [Recovered/Resolved]
  - Vulvovaginal burning sensation [Recovered/Resolved]
  - Vulvovaginal discomfort [Not Recovered/Not Resolved]
